FAERS Safety Report 16950635 (Version 1)
Quarter: 2019Q4

REPORT INFORMATION
  Report Type: Spontaneous
  Country: US (occurrence: US)
  Receive Date: 20190903
  Receipt Date: 20190903
  Transmission Date: 20200122
  Serious: Yes (Hospitalization)
  Sender: FDA-Public Use
  Company Number: None

PATIENT
  Age: 57 Year
  Sex: Female

DRUGS (13)
  1. CALTRATE [Concomitant]
     Active Substance: CALCIUM CARBONATE
  2. SIMPONI [Concomitant]
     Active Substance: GOLIMUMAB
  3. RESTASIS [Concomitant]
     Active Substance: CYCLOSPORINE
  4. CEPHALEXIN. [Concomitant]
     Active Substance: CEPHALEXIN
  5. RANITIDINE. [Concomitant]
     Active Substance: RANITIDINE
  6. SIMPONI [Suspect]
     Active Substance: GOLIMUMAB
     Indication: RHEUMATOID ARTHRITIS
     Route: 058
     Dates: start: 20160107
  7. FLAX OIL [Concomitant]
  8. FOLIC ACID. [Concomitant]
     Active Substance: FOLIC ACID
  9. MULTI MEGA [Concomitant]
  10. KETOPROFEN. [Concomitant]
     Active Substance: KETOPROFEN
  11. METHOTREXATE. [Concomitant]
     Active Substance: METHOTREXATE
  12. ZANTAC [Concomitant]
     Active Substance: RANITIDINE HYDROCHLORIDE
  13. ALIGN [Concomitant]
     Active Substance: BIFIDOBACTERIUM LONGUM SUBSP. INFANTIS

REACTIONS (3)
  - Loss of personal independence in daily activities [None]
  - Rheumatoid arthritis [None]
  - Accident [None]
